FAERS Safety Report 24531393 (Version 1)
Quarter: 2024Q4

REPORT INFORMATION
  Report Type: Report from Study
  Country: US (occurrence: US)
  Receive Date: 20241022
  Receipt Date: 20241022
  Transmission Date: 20250114
  Serious: No
  Sender: ROCHE
  Company Number: US-ROCHE-2799816

PATIENT
  Age: 80 Year
  Sex: Male

DRUGS (10)
  1. PULMOZYME [Suspect]
     Active Substance: DORNASE ALFA
     Indication: Chronic obstructive pulmonary disease
     Dosage: NEBULIZE THE CONTENTS OF 1 VIAL(S) 2.5MG TWICE A DAY 30 X 2.5 ML AMPULES, CONTENT DOSE: 2.5 ML DISPE
     Route: 065
  2. PULMOZYME [Suspect]
     Active Substance: DORNASE ALFA
     Indication: Chronic respiratory failure
     Dosage: NEBULIZE THE CONTENTS OF 1 VIAL TWICE A DAY AS DIRECTED
     Route: 065
  3. PULMOZYME [Suspect]
     Active Substance: DORNASE ALFA
     Indication: Cough
     Dosage: NEBULIZE THE CONTENTS OF 1 VIAL  TWICE A DAY AS DIRECTED
     Route: 065
  4. PULMOZYME [Suspect]
     Active Substance: DORNASE ALFA
     Indication: Dyspnoea
     Route: 065
  5. PULMOZYME [Suspect]
     Active Substance: DORNASE ALFA
     Indication: Hypoxia
  6. PULMOZYME [Suspect]
     Active Substance: DORNASE ALFA
     Indication: Lower respiratory tract infection
  7. PULMOZYME [Suspect]
     Active Substance: DORNASE ALFA
     Indication: Influenza like illness
  8. PULMOZYME [Suspect]
     Active Substance: DORNASE ALFA
     Indication: Bronchitis chronic
  9. PULMOZYME [Suspect]
     Active Substance: DORNASE ALFA
     Indication: Acute respiratory failure
  10. PULMOZYME [Suspect]
     Active Substance: DORNASE ALFA
     Indication: Pseudomonas infection

REACTIONS (3)
  - Off label use [Unknown]
  - Productive cough [Unknown]
  - Sputum retention [Unknown]
